FAERS Safety Report 4478362-9 (Version None)
Quarter: 2004Q4

REPORT INFORMATION
  Report Type: 
  Country: None (occurrence: None)
  Receive Date: 20041018
  Receipt Date: 20041018
  Transmission Date: 20050328
  Serious: No
  Sender: FDA-Public Use
  Company Number: None

PATIENT
  Age: 43 Year
  Sex: Female
  Weight: 75 kg

DRUGS (2)
  1. DUANE READE TOOTH WHITENING [Suspect]
     Indication: DENTAL TREATMENT
     Dosage: DAILY  14 DAYS  BUCCAL
     Route: 002
     Dates: start: 20040922, end: 20040930
  2. DUANE READE TOOTH WHITENING [Suspect]
     Indication: TOOTH DISORDER
     Dosage: DAILY  14 DAYS  BUCCAL
     Route: 002
     Dates: start: 20040922, end: 20040930

REACTIONS (1)
  - OESOPHAGITIS ULCERATIVE [None]
